FAERS Safety Report 8709423 (Version 3)
Quarter: 2012Q4

REPORT INFORMATION
  Report Type: Report from Study
  Country: US (occurrence: US)
  Receive Date: 20120806
  Receipt Date: 20120904
  Transmission Date: 20130627
  Serious: Yes (Other)
  Sender: FDA-Public Use
  Company Number: US-BRISTOL-MYERS SQUIBB COMPANY-16818825

PATIENT
  Age: 68 Year
  Sex: Female
  Weight: 83 kg

DRUGS (10)
  1. IPILIMUMAB [Suspect]
     Indication: MALIGNANT MELANOMA
     Dosage: Last administered on 13-Jun-2012,10mg/kg over 90 min,05Jul12
     Route: 042
     Dates: start: 20120523
  2. LIPITOR [Concomitant]
     Route: 048
  3. ZESTRIL [Concomitant]
     Route: 048
  4. PRED FORTE [Concomitant]
  5. SYNTHROID [Concomitant]
     Route: 048
  6. PREDNISOLONE SODIUM PHOSPHATE [Concomitant]
     Dosage: 1 % ophthalmic solution, both eyes
     Route: 047
     Dates: start: 20120705
  7. ATIVAN [Concomitant]
     Dates: start: 20120509, end: 20120807
  8. TYLENOL [Concomitant]
     Dosage: 2 tabs every four hour
     Route: 048
     Dates: start: 20120330
  9. COLACE [Concomitant]
     Dosage: 1 DF: 100 Unit nos. 1 cap
     Dates: start: 20120330, end: 20120706
  10. PERCOCET [Concomitant]
     Dosage: 1 DF: Oxycodone-Acetaminophen 5-325 mg tablet, every 4 hr
     Route: 048
     Dates: start: 20120330, end: 20120706

REACTIONS (2)
  - Hearing impaired [Not Recovered/Not Resolved]
  - Uveitis [Recovered/Resolved]
